FAERS Safety Report 6653473-8 (Version None)
Quarter: 2010Q1

REPORT INFORMATION
  Report Type: 
  Country: None (occurrence: None)
  Receive Date: 20100326
  Receipt Date: 20100315
  Transmission Date: 20100710
  Serious: No
  Sender: FDA-Public Use
  Company Number: US-JNJFOC-20100304846

PATIENT
  Sex: Female
  Weight: 72.58 kg

DRUGS (6)
  1. FENTANYL-100 [Suspect]
     Indication: PELVIC PAIN
     Route: 062
  2. FENTANYL-100 [Suspect]
     Indication: PAIN IN EXTREMITY
     Route: 062
  3. FENTANYL-100 [Suspect]
     Indication: MUSCULOSKELETAL PAIN
     Route: 062
  4. FENTANYL-100 [Suspect]
     Route: 062
  5. FENTANYL-100 [Suspect]
     Route: 062
  6. FENTANYL-100 [Suspect]
     Route: 062

REACTIONS (6)
  - APPLICATION SITE PAIN [None]
  - APPLICATION SITE PRURITUS [None]
  - APPLICATION SITE WARMTH [None]
  - DRUG DOSE OMISSION [None]
  - MALAISE [None]
  - WRONG TECHNIQUE IN DRUG USAGE PROCESS [None]
